FAERS Safety Report 9459629 (Version 1)
Quarter: 2013Q3

REPORT INFORMATION
  Report Type: Spontaneous
  Country: US (occurrence: US)
  Receive Date: 20130815
  Receipt Date: 20130815
  Transmission Date: 20140515
  Serious: No
  Sender: FDA-Public Use
  Company Number: US-COVIDIEN/TYCO HEALTHCARE/MALLINCKRODT-T201302429

PATIENT
  Sex: Female

DRUGS (1)
  1. FENTANYL TRANSDERMAL SYSTEM [Suspect]
     Indication: PRODUCT USED FOR UNKNOWN INDICATION
     Dosage: 50 UG/HR, ONE PATCH EVERY 48 HOURS
     Route: 062
     Dates: start: 20130508

REACTIONS (5)
  - Dysstasia [Unknown]
  - Back pain [Unknown]
  - Fatigue [Unknown]
  - Feeling cold [Unknown]
  - Hyperhidrosis [Unknown]
